FAERS Safety Report 13367353 (Version 1)
Quarter: 2017Q1

REPORT INFORMATION
  Report Type: Spontaneous
  Country: MX (occurrence: MX)
  Receive Date: 20170324
  Receipt Date: 20170324
  Transmission Date: 20170429
  Serious: Yes (Hospitalization, Other)
  Sender: FDA-Public Use
  Company Number: MX-SA-2017SA045588

PATIENT
  Age: 71 Year
  Sex: Female
  Weight: 72 kg

DRUGS (4)
  1. LANTUS SOLOSTAR [Suspect]
     Active Substance: INSULIN GLARGINE
     Indication: DIABETES MELLITUS
     Route: 058
     Dates: start: 2013, end: 201509
  2. SOLOSTAR [Concomitant]
     Active Substance: DEVICE
     Indication: DIABETES MELLITUS
     Dates: start: 201509, end: 20170221
  3. LANTUS SOLOSTAR [Suspect]
     Active Substance: INSULIN GLARGINE
     Indication: DIABETES MELLITUS
     Dosage: DOSE-15 IU IN THE?MORNING, 10?IU IN THE?AFTERNOON?AND 30 IU IN?THE NIGHT)
     Route: 058
     Dates: start: 201509, end: 20170221
  4. SOLOSTAR [Concomitant]
     Active Substance: DEVICE
     Indication: DIABETES MELLITUS
     Dates: start: 2013, end: 201509

REACTIONS (5)
  - Asterixis [Recovered/Resolved]
  - Hyperglycaemia [Recovered/Resolved]
  - Hodgkin^s disease [Recovered/Resolved]
  - Off label use [Unknown]
  - Hypoglycaemia [Recovered/Resolved]

NARRATIVE: CASE EVENT DATE: 20150722
